FAERS Safety Report 6088248-4 (Version None)
Quarter: 2009Q1

REPORT INFORMATION
  Report Type: 
  Country: None (occurrence: None)
  Receive Date: 20090224
  Receipt Date: 20090218
  Transmission Date: 20090719
  Serious: Yes (Hospitalization)
  Sender: FDA-Public Use
  Company Number: US-JNJFOC-20090202779

PATIENT
  Sex: Female
  Weight: 95.26 kg

DRUGS (4)
  1. DURAGESIC-100 [Suspect]
     Route: 062
  2. DURAGESIC-100 [Suspect]
     Indication: NERVE INJURY
     Route: 062
  3. LOPRESSOR [Concomitant]
     Indication: HYPERTENSION
     Dosage: 1/2 TABLET TWO TIMES A DAY
     Route: 048
  4. DIGOXIN [Concomitant]
     Indication: SINUS TACHYCARDIA
     Route: 048

REACTIONS (29)
  - BALANCE DISORDER [None]
  - BLOOD CHOLESTEROL INCREASED [None]
  - CLAVICLE FRACTURE [None]
  - CONFUSIONAL STATE [None]
  - DEPRESSION [None]
  - DIABETES MELLITUS [None]
  - FALL [None]
  - GAIT DISTURBANCE [None]
  - HAND DEFORMITY [None]
  - HEAD INJURY [None]
  - HUMERUS FRACTURE [None]
  - HYPOAESTHESIA [None]
  - INCOHERENT [None]
  - INSOMNIA [None]
  - NERVE INJURY [None]
  - NEUROPATHY PERIPHERAL [None]
  - POOR PERIPHERAL CIRCULATION [None]
  - PRODUCT QUALITY ISSUE [None]
  - PYREXIA [None]
  - RIB FRACTURE [None]
  - ROAD TRAFFIC ACCIDENT [None]
  - SKIN DISCOLOURATION [None]
  - SWELLING FACE [None]
  - THROMBOSIS [None]
  - TREATMENT NONCOMPLIANCE [None]
  - ULCER [None]
  - UPPER LIMB FRACTURE [None]
  - URINARY INCONTINENCE [None]
  - WRONG TECHNIQUE IN DRUG USAGE PROCESS [None]
